FAERS Safety Report 9501653 (Version 1)
Quarter: 2013Q3

REPORT INFORMATION
  Report Type: Spontaneous
  Country: US (occurrence: US)
  Receive Date: 20130905
  Receipt Date: 20130905
  Transmission Date: 20140515
  Serious: Yes (Other)
  Sender: FDA-Public Use
  Company Number: US-TEVA-430319USA

PATIENT
  Age: 50 Year
  Sex: Male
  Weight: 104 kg

DRUGS (4)
  1. PROPOFOL [Suspect]
     Indication: ANAESTHESIA
     Route: 042
  2. PROPOFOL [Suspect]
     Indication: ANAESTHESIA
     Dosage: [DOSAGE NOT STATED]
     Route: 041
  3. ROCURONIUM [Suspect]
     Indication: MUSCLE RELAXANT THERAPY
     Route: 065
  4. CEFAZOLIN [Suspect]
     Indication: ANTIBIOTIC PROPHYLAXIS
     Route: 042

REACTIONS (2)
  - Anaphylactic reaction [Recovered/Resolved]
  - Propofol infusion syndrome [Recovered/Resolved]
